FAERS Safety Report 12797070 (Version 3)
Quarter: 2016Q4

REPORT INFORMATION
  Report Type: Spontaneous
  Country: US (occurrence: US)
  Receive Date: 20160930
  Receipt Date: 20161130
  Transmission Date: 20170207
  Serious: Yes (Other)
  Sender: FDA-Public Use
  Company Number: US-PFIZER INC-2016444073

PATIENT
  Age: 62 Year
  Sex: Female

DRUGS (5)
  1. SANDOSTATIN [Concomitant]
     Active Substance: OCTREOTIDE ACETATE
     Dosage: UNK, EVERY 3 WEEKS
  2. KRILL OIL [Concomitant]
     Active Substance: DIETARY SUPPLEMENT
     Dosage: UNK
  3. VITAMIN D [Concomitant]
     Active Substance: CHOLECALCIFEROL
     Dosage: UNK
  4. SUTENT [Suspect]
     Active Substance: SUNITINIB MALATE
     Indication: CARCINOID SYNDROME
     Dosage: 50 MG, 1X/DAY
     Dates: start: 201402
  5. MAGNESIUM [Concomitant]
     Active Substance: MAGNESIUM
     Dosage: UNK

REACTIONS (20)
  - Pain [Unknown]
  - Product use issue [Unknown]
  - Malaise [Unknown]
  - Hair colour changes [Unknown]
  - Vaginal lesion [Unknown]
  - Dysuria [Unknown]
  - Eating disorder [Unknown]
  - Tongue blistering [Unknown]
  - Vaginal mucosal blistering [Recovered/Resolved]
  - Glossodynia [Recovered/Resolved]
  - Vulvovaginal discomfort [Unknown]
  - Skin disorder [Recovered/Resolved]
  - Haemorrhage [Not Recovered/Not Resolved]
  - Bowel movement irregularity [Unknown]
  - Skin discolouration [Not Recovered/Not Resolved]
  - Skin exfoliation [Not Recovered/Not Resolved]
  - Hair colour changes [Recovering/Resolving]
  - Oral discomfort [Unknown]
  - Vomiting [Unknown]
  - Eyelash discolouration [Unknown]

NARRATIVE: CASE EVENT DATE: 201608
